FAERS Safety Report 8610980-6 (Version None)
Quarter: 2012Q3

REPORT INFORMATION
  Report Type: 
  Country: None (occurrence: None)
  Receive Date: 20120809
  Receipt Date: 20120730
  Transmission Date: 20120928
  Serious: Yes (Other)
  Sender: FDA-Public Use
  Company Number: 2012SA054942

PATIENT
  Age: 32 Year
  Sex: Female

DRUGS (1)
  1. MENTHOL [Suspect]
     Dates: start: 20120729

REACTIONS (1)
  - CHEMICAL BURN OF SKIN [None]
